FAERS Safety Report 5917027-0 (Version None)
Quarter: 2008Q4

REPORT INFORMATION
  Report Type: 
  Country: None (occurrence: None)
  Receive Date: 20081009
  Receipt Date: 20081009
  Transmission Date: 20090506
  Serious: Yes (Hospitalization)
  Sender: FDA-Public Use
  Company Number: None

PATIENT
  Sex: Female
  Weight: 68.18 kg

DRUGS (2)
  1. CARBOPLATIN [Suspect]
     Dosage: 450 MG
     Dates: start: 20080401, end: 20080401
  2. TAXOL [Suspect]
     Dosage: 306 MG
     Dates: end: 20080401

REACTIONS (5)
  - ASCITES [None]
  - HAEMOGLOBIN DECREASED [None]
  - HEART RATE INCREASED [None]
  - MALIGNANT NEOPLASM OF PLEURA [None]
  - PLEURAL EFFUSION [None]
